FAERS Safety Report 6608002-1 (Version None)
Quarter: 2010Q1

REPORT INFORMATION
  Report Type: 
  Country: None (occurrence: None)
  Receive Date: 20100301
  Receipt Date: 20100215
  Transmission Date: 20100710
  Serious: Yes (Death)
  Sender: FDA-Public Use
  Company Number: US-JNJFOC-20100209991

PATIENT
  Sex: Male
  Weight: 69.4 kg

DRUGS (1)
  1. FENTANYL-100 [Suspect]
     Indication: DRUG USE FOR UNKNOWN INDICATION
     Route: 065

REACTIONS (2)
  - NARCOTIC INTOXICATION [None]
  - WRONG TECHNIQUE IN DRUG USAGE PROCESS [None]
